FAERS Safety Report 9678867 (Version 1)
Quarter: 2013Q4

REPORT INFORMATION
  Report Type: Report from Study
  Country: DE (occurrence: DE)
  Receive Date: 20131108
  Receipt Date: 20131108
  Transmission Date: 20140711
  Serious: Yes (Hospitalization)
  Sender: FDA-Public Use
  Company Number: DE-ABBVIE-13P-062-1167501-00

PATIENT
  Age: 65 Year
  Sex: Female
  Weight: 40 kg

DRUGS (11)
  1. ZEMPLAR [Suspect]
     Indication: RENAL FAILURE
  2. BICANORM [Concomitant]
     Indication: PRODUCT USED FOR UNKNOWN INDICATION
  3. FOSRENOL [Concomitant]
     Indication: PRODUCT USED FOR UNKNOWN INDICATION
  4. CALCET [Concomitant]
     Indication: PRODUCT USED FOR UNKNOWN INDICATION
  5. ACETYLICSALICYLIC ACID [Concomitant]
     Indication: PRODUCT USED FOR UNKNOWN INDICATION
  6. SIMVASTATIN [Concomitant]
     Indication: PRODUCT USED FOR UNKNOWN INDICATION
  7. ALLOBETA [Concomitant]
     Indication: PRODUCT USED FOR UNKNOWN INDICATION
  8. MIMPARA [Concomitant]
     Indication: PRODUCT USED FOR UNKNOWN INDICATION
  9. OMEPRAZOLE [Concomitant]
     Indication: PRODUCT USED FOR UNKNOWN INDICATION
  10. BERODUAL [Concomitant]
     Indication: PRODUCT USED FOR UNKNOWN INDICATION
  11. SYMBICORT [Concomitant]
     Indication: PRODUCT USED FOR UNKNOWN INDICATION

REACTIONS (1)
  - Device dislocation [Recovered/Resolved]
